FAERS Safety Report 8874195 (Version 1)
Quarter: 2012Q4

REPORT INFORMATION
  Report Type: 
  Country: US (occurrence: US)
  Receive Date: 20121023
  Receipt Date: 20121023
  Transmission Date: 20130627
  Serious: No
  Sender: FDA-Public Use
  Company Number: US-PFIZER INC-2012264223

PATIENT
  Age: 47 Year
  Sex: Female
  Weight: 80.73 kg

DRUGS (2)
  1. LYRICA [Suspect]
     Indication: SCIATICA
     Dosage: one 50mg in the morning and two 50mg capsules at night
     Route: 048
     Dates: start: 201206
  2. NAPROXEN [Concomitant]
     Dosage: UNK

REACTIONS (1)
  - Somnolence [Not Recovered/Not Resolved]
